FAERS Safety Report 10703233 (Version 3)
Quarter: 2016Q1

REPORT INFORMATION
  Report Type: Report from Study
  Country: US (occurrence: US)
  Receive Date: 20150112
  Receipt Date: 20160219
  Transmission Date: 20160525
  Serious: Yes (Hospitalization, Other)
  Sender: FDA-Public Use
  Company Number: US-AMGEN-USASP2015001344

PATIENT
  Age: 80 Year
  Sex: Male

DRUGS (2)
  1. ENBREL [Suspect]
     Active Substance: ETANERCEPT
     Indication: RHEUMATOID ARTHRITIS
     Dosage: 50 MG, QWK
     Route: 065
     Dates: start: 20040201
  2. ENBREL [Suspect]
     Active Substance: ETANERCEPT
     Dosage: 50 MG, Q2WK
     Route: 065

REACTIONS (14)
  - Mobility decreased [Unknown]
  - Knee arthroplasty [Unknown]
  - Malaise [Unknown]
  - Fatigue [Unknown]
  - Influenza [Unknown]
  - Urticaria [Unknown]
  - Pain [Unknown]
  - Injection site bruising [Unknown]
  - Fall [Unknown]
  - Inappropriate schedule of drug administration [Not Recovered/Not Resolved]
  - Intentional product misuse [Unknown]
  - Stent placement [Unknown]
  - Arthralgia [Unknown]
  - Pain in extremity [Unknown]

NARRATIVE: CASE EVENT DATE: 20150106
